FAERS Safety Report 5362078-0 (Version None)
Quarter: 2007Q2

REPORT INFORMATION
  Report Type: 
  Country: None (occurrence: None)
  Receive Date: 20070619
  Receipt Date: 20070608
  Transmission Date: 20071010
  Serious: Yes (Other)
  Sender: FDA-Public Use
  Company Number: GB-AMGEN-US197554

PATIENT
  Sex: Female
  Weight: 89 kg

DRUGS (8)
  1. ENBREL [Suspect]
     Indication: RHEUMATOID ARTHRITIS
     Route: 058
     Dates: start: 20051001, end: 20061003
  2. FOLIC ACID [Concomitant]
     Indication: RHEUMATOID ARTHRITIS
     Route: 048
     Dates: start: 20060901
  3. MEGACE [Concomitant]
     Dates: start: 20050101
  4. LETROZOLE [Concomitant]
     Indication: BREAST CANCER
     Route: 048
     Dates: start: 20050101
  5. LEVOTHYROXINE SODIUM [Concomitant]
     Indication: HYPOTHYROIDISM
     Route: 048
     Dates: start: 20020101
  6. LANSOPRAZOLE [Concomitant]
     Route: 048
     Dates: start: 20020101
  7. METHOTREXATE [Concomitant]
     Indication: RHEUMATOID ARTHRITIS
     Route: 048
     Dates: start: 20060725
  8. DOTHIEPIN HYDROCHLORIDE [Concomitant]
     Indication: ANTIDEPRESSANT THERAPY
     Route: 048
     Dates: start: 20010101

REACTIONS (2)
  - RED BLOOD CELL SEDIMENTATION RATE INCREASED [None]
  - RHEUMATOID NODULE [None]
